FAERS Safety Report 20420337 (Version 5)
Quarter: 2022Q2

REPORT INFORMATION
  Report Type: Report from Study
  Country: JP (occurrence: JP)
  Receive Date: 20220203
  Receipt Date: 20220629
  Transmission Date: 20220721
  Serious: Yes (Hospitalization, Disabling, Other)
  Sender: FDA-Public Use
  Company Number: JP-BRISTOL-MYERS SQUIBB COMPANY-BMS-2021-013396

PATIENT
  Age: 65 Year
  Sex: Male
  Weight: 63.1 kg

DRUGS (9)
  1. NIVOLUMAB [Suspect]
     Active Substance: NIVOLUMAB
     Indication: Non-small cell lung cancer recurrent
     Dosage: 360 MILLIGRAM, Q3WK
     Route: 041
     Dates: start: 20201203
  2. NIVOLUMAB [Suspect]
     Active Substance: NIVOLUMAB
     Route: 041
     Dates: start: 20210107, end: 20210107
  3. NIVOLUMAB [Suspect]
     Active Substance: NIVOLUMAB
     Route: 041
     Dates: start: 20210129, end: 20210129
  4. IPILIMUMAB [Suspect]
     Active Substance: IPILIMUMAB
     Indication: Non-small cell lung cancer recurrent
     Dosage: 1 MG/KG (63 MG)
     Route: 041
     Dates: start: 20201203, end: 20201203
  5. IPILIMUMAB [Suspect]
     Active Substance: IPILIMUMAB
     Dosage: 1 MG/KG (60 MG)
     Route: 041
     Dates: start: 20210129, end: 20210129
  6. CARBOPLATIN [Suspect]
     Active Substance: CARBOPLATIN
     Indication: Non-small cell lung cancer recurrent
     Dosage: 700 MILLIGRAM
     Route: 065
     Dates: start: 20201203, end: 20201203
  7. CARBOPLATIN [Suspect]
     Active Substance: CARBOPLATIN
     Dosage: 610 MILLIGRAM
     Route: 065
     Dates: start: 20210107, end: 20210107
  8. PEMETREXED [Suspect]
     Active Substance: PEMETREXED
     Indication: Non-small cell lung cancer recurrent
     Dosage: 830 MILLIGRAM
     Route: 065
     Dates: start: 20201203, end: 20201203
  9. PEMETREXED [Suspect]
     Active Substance: PEMETREXED
     Dosage: 815 MILLIGRAM
     Route: 065
     Dates: start: 20210107, end: 20210107

REACTIONS (2)
  - Hypophysitis [Recovered/Resolved with Sequelae]
  - Interstitial lung disease [Recovered/Resolved]

NARRATIVE: CASE EVENT DATE: 20210205
